FAERS Safety Report 5067167-6 (Version None)
Quarter: 2006Q3

REPORT INFORMATION
  Report Type: 
  Country: None (occurrence: None)
  Receive Date: 20060801
  Receipt Date: 20060627
  Transmission Date: 20061208
  Serious: Yes (Other)
  Sender: FDA-Public Use
  Company Number: US-BOEHRINGER INGELHEIM PHARMACEUTICALS, INC.-2006-BP-07399BP

PATIENT
  Sex: Male

DRUGS (5)
  1. MIRAPEX [Suspect]
     Indication: PARKINSON'S DISEASE
     Route: 048
     Dates: start: 20000901
  2. ARTANE [Concomitant]
     Dosage: 2 MG X (1+1)
     Dates: start: 20000101
  3. AMANTADINE HCL [Concomitant]
  4. SINEMET [Concomitant]
     Dosage: 50/200
     Dates: start: 20030101
  5. WELLBUTRIN [Concomitant]
     Dosage: X 1

REACTIONS (8)
  - ABNORMAL BEHAVIOUR [None]
  - COMPULSIONS [None]
  - ECONOMIC PROBLEM [None]
  - EMOTIONAL DISORDER [None]
  - GAMBLING [None]
  - INSOMNIA [None]
  - MENTAL DISORDER [None]
  - PERSONALITY CHANGE [None]
